FAERS Safety Report 7952174-3 (Version None)
Quarter: 2011Q4

REPORT INFORMATION
  Report Type: 
  Country: None (occurrence: None)
  Receive Date: 20111201
  Receipt Date: 20111122
  Transmission Date: 20120403
  Serious: Yes (Hospitalization)
  Sender: FDA-Public Use
  Company Number: PHEH2011US010099

PATIENT

DRUGS (1)
  1. TASIGNA [Suspect]
     Indication: CHRONIC MYELOID LEUKAEMIA
     Dosage: 400 MG, BID
     Route: 048
     Dates: start: 20111018, end: 20111113

REACTIONS (4)
  - HEADACHE [None]
  - ASTHENIA [None]
  - FAECES DISCOLOURED [None]
  - ABDOMINAL PAIN UPPER [None]
